FAERS Safety Report 14986866 (Version 1)
Quarter: 2018Q2

REPORT INFORMATION
  Report Type: Spontaneous
  Country: DE (occurrence: DE)
  Receive Date: 20180608
  Receipt Date: 20180608
  Transmission Date: 20180711
  Serious: Yes (Hospitalization)
  Sender: FDA-Public Use
  Company Number: DE-TEVA-2018-DE-902968

PATIENT
  Age: 85 Year
  Sex: Male

DRUGS (9)
  1. XIPAMID [Concomitant]
     Active Substance: XIPAMIDE
     Dosage: 10 MG, 1-0-0-0
  2. CITALOPRAM [Concomitant]
     Active Substance: CITALOPRAM HYDROBROMIDE
     Dosage: 10 MG, 1-0-0-0
  3. KALIUM [Concomitant]
     Active Substance: POTASSIUM CHLORIDE
     Dosage: 1-0-0-0
  4. METOPROLOL. [Suspect]
     Active Substance: METOPROLOL
     Dosage: 23.75 MG, 1-0-0-1
  5. PANTOPRAZOL [Concomitant]
     Active Substance: PANTOPRAZOLE SODIUM
     Dosage: 40 MG, 1-0-1-0
  6. APIXABAN [Concomitant]
     Active Substance: APIXABAN
     Dosage: 2.5 MG, 1-0-1-0
  7. FUROSEMID [Concomitant]
     Active Substance: FUROSEMIDE
     Dosage: 40 MG, 1-1-0-0
  8. AMPHOTERICIN B. [Concomitant]
     Active Substance: AMPHOTERICIN B
     Dosage: 1-1-1-0, PIPETTE
  9. METAMIZOL [Concomitant]
     Active Substance: METAMIZOLE SODIUM
     Dosage: 20-20-20-0, TROPFEN

REACTIONS (5)
  - General physical health deterioration [Unknown]
  - Tachypnoea [Unknown]
  - Dizziness [Unknown]
  - Drug prescribing error [Unknown]
  - Dyspnoea [Unknown]
